FAERS Safety Report 8780202 (Version 1)
Quarter: 2012Q4

REPORT INFORMATION
  Report Type: Spontaneous
  Country: KR (occurrence: None)
  Receive Date: 20120829
  Receipt Date: 20120829
  Transmission Date: 20130627
  Serious: Yes (Hospitalization)
  Sender: FDA-Public Use
  Company Number: FK201202369

PATIENT
  Age: 22 Year
  Sex: Male

DRUGS (3)
  1. CEFOTAXIME [Suspect]
     Indication: CHOLECYSTITIS ACUTE
  2. METRONIDAZOLE [Suspect]
     Indication: CHOLECYSTITIS ACUTE
  3. OSELTAMIVIR [Concomitant]

REACTIONS (1)
  - Drug reaction with eosinophilia and systemic symptoms [None]
